FAERS Safety Report 4801723-2 (Version None)
Quarter: 2005Q3

REPORT INFORMATION
  Report Type: 
  Country: None (occurrence: None)
  Receive Date: 20050929
  Receipt Date: 20050718
  Transmission Date: 20060218
  Serious: Yes (Hospitalization)
  Sender: FDA-Public Use
  Company Number: 05P-163-0305958-00

PATIENT
  Age: 63 Year
  Sex: Female
  Weight: 67.1324 kg

DRUGS (1)
  1. HUMIRA [Suspect]
     Indication: RHEUMATOID ARTHRITIS
     Dosage: 40 MG, 1 IN 2 WK, SUBCUTANEOUS
     Route: 058
     Dates: start: 20030101, end: 20050604

REACTIONS (6)
  - BLOOD POTASSIUM DECREASED [None]
  - LACERATION [None]
  - NASOPHARYNGITIS [None]
  - PNEUMONIA [None]
  - SEPSIS [None]
  - SKIN LACERATION [None]
